FAERS Safety Report 7682386-8 (Version None)
Quarter: 2011Q3

REPORT INFORMATION
  Report Type: 
  Country: None (occurrence: None)
  Receive Date: 20110810
  Receipt Date: 20110802
  Transmission Date: 20111222
  Serious: Yes (Death, Other)
  Sender: FDA-Public Use
  Company Number: 2009EU004565

PATIENT
  Age: 2 Year
  Sex: Male

DRUGS (2)
  1. TACROLIMUS [Suspect]
     Indication: LIVER TRANSPLANT
     Dosage: 0.15, /D
  2. PREDNISOLONE [Suspect]
     Dosage: 5 MG/DAY, /D

REACTIONS (9)
  - HYPERTROPHIC CARDIOMYOPATHY [None]
  - EPSTEIN-BARR VIRUS ASSOCIATED LYMPHOPROLIFERATIVE DISORDER [None]
  - BLOOD PRESSURE SYSTOLIC INCREASED [None]
  - TACHYCARDIA [None]
  - LEFT VENTRICULAR HYPERTROPHY [None]
  - CARDIAC MURMUR [None]
  - IMMUNOSUPPRESSANT DRUG LEVEL INCREASED [None]
  - QRS AXIS ABNORMAL [None]
  - AORTIC VALVE STENOSIS [None]
